FAERS Safety Report 22304134 (Version 1)
Quarter: 2023Q2

REPORT INFORMATION
  Report Type: Spontaneous
  Country: AT (occurrence: AT)
  Receive Date: 20230510
  Receipt Date: 20230510
  Transmission Date: 20230722
  Serious: Yes (Other)
  Sender: FDA-Public Use
  Company Number: AT-ROCHE-3314114

PATIENT
  Age: 60 Year
  Sex: Male

DRUGS (25)
  1. RITUXIMAB [Suspect]
     Active Substance: RITUXIMAB
     Indication: Diffuse large B-cell lymphoma
     Dosage: UNK
     Route: 042
     Dates: start: 20221212, end: 20221217
  2. RITUXIMAB [Suspect]
     Active Substance: RITUXIMAB
     Dosage: UNK
     Route: 042
     Dates: start: 20230124, end: 20230129
  3. RITUXIMAB [Suspect]
     Active Substance: RITUXIMAB
     Dosage: UNK
     Route: 042
     Dates: start: 20230214, end: 20230219
  4. RITUXIMAB [Suspect]
     Active Substance: RITUXIMAB
     Dosage: 750 MG, (IN 500 ML NACL 0.9 PERCENATAGE 500 ML POLYPROPYLENE POUCH, FRESENIUS)
     Route: 042
     Dates: start: 20230103, end: 20230108
  5. VINCRISTINE SULFATE [Suspect]
     Active Substance: VINCRISTINE SULFATE
     Indication: Diffuse large B-cell lymphoma
     Dosage: UNK
     Route: 065
     Dates: start: 20221212, end: 20221217
  6. DOXORUBICIN HYDROCHLORIDE [Suspect]
     Active Substance: DOXORUBICIN HYDROCHLORIDE
     Indication: Diffuse large B-cell lymphoma
     Dosage: UNK
     Route: 065
     Dates: start: 20230214, end: 20230219
  7. DOXORUBICIN HYDROCHLORIDE [Suspect]
     Active Substance: DOXORUBICIN HYDROCHLORIDE
     Dosage: UNK
     Route: 065
     Dates: start: 20230124, end: 20230129
  8. DOXORUBICIN HYDROCHLORIDE [Suspect]
     Active Substance: DOXORUBICIN HYDROCHLORIDE
     Dosage: 100 MG, (50 ML IN 250 ML NACL 0.9 PERCENTAGE 250 ML POLYPROPYLENE POUCH, FRESENIUS)
     Route: 042
     Dates: start: 20230104
  9. DOXORUBICIN HYDROCHLORIDE [Suspect]
     Active Substance: DOXORUBICIN HYDROCHLORIDE
     Dosage: UNK
     Route: 065
     Dates: start: 20221212, end: 20221217
  10. DOXORUBICIN HYDROCHLORIDE [Suspect]
     Active Substance: DOXORUBICIN HYDROCHLORIDE
     Dosage: 100 MG, (IN 250 ML NACL 0.9 PERCENTAGE 250 ML POLYPROPYLENE POUCH, FRESENIUS)
     Route: 042
     Dates: start: 20230103, end: 20230108
  11. CYCLOPHOSPHAMIDE [Suspect]
     Active Substance: CYCLOPHOSPHAMIDE
     Indication: Diffuse large B-cell lymphoma
     Dosage: UNK
     Route: 065
     Dates: start: 20230124, end: 20230129
  12. CYCLOPHOSPHAMIDE [Suspect]
     Active Substance: CYCLOPHOSPHAMIDE
     Dosage: UNK
     Route: 065
     Dates: start: 20230214, end: 20230219
  13. CYCLOPHOSPHAMIDE [Suspect]
     Active Substance: CYCLOPHOSPHAMIDE
     Dosage: 1500 MG, (IN 500 ML NACL 0.9 PERCENATAGE 500 ML POLYPROPYLENE POUCH, FRESENIUS, IV)
     Route: 042
     Dates: start: 20230103, end: 20230108
  14. CYCLOPHOSPHAMIDE [Suspect]
     Active Substance: CYCLOPHOSPHAMIDE
     Dosage: UNK
     Route: 065
     Dates: start: 20221212, end: 20221217
  15. POLIVY [Suspect]
     Active Substance: POLATUZUMAB VEDOTIN-PIIQ
     Indication: Diffuse large B-cell lymphoma
     Dosage: UNK
     Route: 065
     Dates: start: 20230103
  16. POLIVY [Suspect]
     Active Substance: POLATUZUMAB VEDOTIN-PIIQ
     Dosage: 232.2 ML, (IN 100 ML NACL 0.9 PERCENTAGE (2-8CENTIGRADE) 100 ML POLYPROPYLENE POUCH, FRESENIUS IV)
     Route: 042
     Dates: start: 20230103, end: 20230108
  17. PREDNISONE [Suspect]
     Active Substance: PREDNISONE
     Indication: Diffuse large B-cell lymphoma
     Dosage: 100 MG
     Route: 065
     Dates: start: 20230103, end: 20230108
  18. PREDNISONE [Suspect]
     Active Substance: PREDNISONE
     Dosage: UNK
     Route: 065
     Dates: start: 20230214, end: 20230219
  19. PREDNISONE [Suspect]
     Active Substance: PREDNISONE
     Dosage: UNK
     Route: 065
     Dates: start: 20230124, end: 20230129
  20. PREDNISONE [Suspect]
     Active Substance: PREDNISONE
     Dosage: UNK
     Route: 065
     Dates: start: 20221212, end: 20221217
  21. DIPHENHYDRAMINE HYDROCHLORIDE [Concomitant]
     Active Substance: DIPHENHYDRAMINE HYDROCHLORIDE
     Dosage: 30 MG, (IN 20 ML NACL 0.9 PERCENTAGE)
  22. ACETAMINOPHEN [Concomitant]
     Active Substance: ACETAMINOPHEN
     Dosage: 1000 MG
     Dates: start: 20230103, end: 20230108
  23. ONDANSETRON [Concomitant]
     Active Substance: ONDANSETRON
     Dosage: 8 ML, (IN 100 ML NACL 0.9 PERCENTAGE IN POLYETHYLENE BOTTLE)
     Dates: start: 20230103, end: 20230108
  24. MESNA [Concomitant]
     Active Substance: MESNA
     Dosage: 400 MG
     Dates: start: 20230104
  25. MESNA [Concomitant]
     Active Substance: MESNA
     Dosage: 400 MG
     Dates: start: 20230103, end: 20230108

REACTIONS (1)
  - Central nervous system lymphoma [Unknown]
